FAERS Safety Report 23113236 (Version 2)
Quarter: 2023Q4

REPORT INFORMATION
  Report Type: Spontaneous
  Country: FR (occurrence: FR)
  Receive Date: 20231027
  Receipt Date: 20231110
  Transmission Date: 20240110
  Serious: Yes (Hospitalization, Other)
  Sender: FDA-Public Use
  Company Number: None

PATIENT
  Age: 45 Year
  Sex: Male
  Weight: 85 kg

DRUGS (10)
  1. KEPPRA [Suspect]
     Active Substance: LEVETIRACETAM
     Indication: Product used for unknown indication
     Dosage: 1000 MILLIGRAM PER DAY
     Route: 042
     Dates: start: 20230913
  2. CRESEMBA [Suspect]
     Active Substance: ISAVUCONAZONIUM SULFATE
     Indication: Rhinocerebral mucormycosis
     Dosage: 600 MILLIGRAM, 3X/DAY (TID)
     Route: 042
     Dates: start: 20230906, end: 20230907
  3. CRESEMBA [Suspect]
     Active Substance: ISAVUCONAZONIUM SULFATE
     Dosage: 600 MILLIGRAM, 3X/DAY (TID)
     Route: 042
     Dates: start: 20230919, end: 20230921
  4. CRESEMBA [Suspect]
     Active Substance: ISAVUCONAZONIUM SULFATE
     Dosage: 200 MILLIGRAM, ONCE DAILY (QD) (200MG/J)
     Route: 042
     Dates: start: 20230922
  5. AMBISOME [Suspect]
     Active Substance: AMPHOTERICIN B
     Indication: Rhinocerebral mucormycosis
     Dosage: 450 MILLIGRAM, ONCE DAILY (QD) (5MG/KG/D)
     Route: 042
     Dates: start: 20230906, end: 20230906
  6. AMBISOME [Suspect]
     Active Substance: AMPHOTERICIN B
     Dosage: 450 MILLIGRAM, ONCE DAILY (QD) (5MG/KG/D)
     Route: 042
     Dates: start: 20230908, end: 20230908
  7. AMBISOME [Suspect]
     Active Substance: AMPHOTERICIN B
     Dosage: 850 MILLIGRAM, ONCE DAILY (QD) (10MG/KG/D)
     Route: 042
     Dates: start: 20230909, end: 20230919
  8. AMBISOME [Suspect]
     Active Substance: AMPHOTERICIN B
     Dosage: 600 MILLIGRAM, ONCE DAILY (QD) (7.5MG/KG/D)
     Route: 042
     Dates: start: 20230919, end: 20230925
  9. AMBISOME [Suspect]
     Active Substance: AMPHOTERICIN B
     Dosage: 450 MILLIGRAM, ONCE DAILY (QD) (5MG/KG/D)
     Route: 042
     Dates: start: 20230925
  10. VALACYCLOVIR HYDROCHLORIDE [Concomitant]
     Active Substance: VALACYCLOVIR HYDROCHLORIDE
     Indication: Prophylaxis
     Dosage: 500 MILLIGRAM PER DAY
     Route: 048

REACTIONS (2)
  - Acute kidney injury [Recovering/Resolving]
  - Creatinine renal clearance decreased [Recovering/Resolving]

NARRATIVE: CASE EVENT DATE: 20230907
